FAERS Safety Report 14653830 (Version 2)
Quarter: 2018Q1

REPORT INFORMATION
  Report Type: Spontaneous
  Country: US (occurrence: US)
  Receive Date: 20180319
  Receipt Date: 20180327
  Transmission Date: 20180509
  Serious: No
  Sender: FDA-Public Use
  Company Number: US-PFIZER INC-2018110262

PATIENT
  Age: 55 Year
  Sex: Male

DRUGS (1)
  1. XELJANZ XR [Suspect]
     Active Substance: TOFACITINIB CITRATE
     Dosage: 11 MG, UNK

REACTIONS (3)
  - Herpes zoster [Unknown]
  - Drug ineffective [Unknown]
  - Upper respiratory tract infection [Unknown]
